FAERS Safety Report 9746453 (Version 4)
Quarter: 2014Q1

REPORT INFORMATION
  Report Type: Report from Study
  Country: AU (occurrence: AU)
  Receive Date: 20131211
  Receipt Date: 20140123
  Transmission Date: 20141002
  Serious: Yes (Hospitalization, Other)
  Sender: FDA-Public Use
  Company Number: PHHY2013AU108577

PATIENT
  Age: 46 Year
  Sex: Female
  Weight: 67 kg

DRUGS (11)
  1. CLOZARIL [Suspect]
     Indication: SCHIZOPHRENIA, PARANOID TYPE
     Dosage: 250 MG DAILY,(50 MG IN THE MORNING AND 200 MG AT NIGHT)
     Dates: start: 2001
  2. CLOZARIL [Suspect]
     Dosage: 250 MG, QD
     Dates: start: 20131203
  3. AMISULPRIDE [Suspect]
     Dosage: 400 MG, AT NIGHT
  4. BETAMIN [Concomitant]
     Dosage: 1 DF, QD
  5. BLACKMORES WOMEN^S VITALITY MULTI [Concomitant]
     Dosage: 1 DF, QD
  6. CALTRATE + VITAMIN D [Concomitant]
     Dosage: 1 DF, QD
  7. COLOXYL C SENNA [Concomitant]
     Indication: CONSTIPATION
     Dosage: 2 DF, QD
  8. CRESTOR [Concomitant]
     Dosage: 1 DF, QD
  9. MOVICOL [Concomitant]
     Indication: CONSTIPATION
     Dosage: 1 DF, PRN
     Route: 048
  10. NEXIAM [Concomitant]
     Dosage: 1 DF, QD
  11. SOLIAN [Concomitant]
     Dosage: 1 DF, QD (MANE)

REACTIONS (28)
  - Pulmonary embolism [Unknown]
  - Chest pain [Unknown]
  - Dyspnoea [Unknown]
  - Hypertension [Unknown]
  - Hypercoagulation [Unknown]
  - Heart valve incompetence [Unknown]
  - Mitral valve incompetence [Unknown]
  - Tricuspid valve incompetence [Unknown]
  - Haemorrhage [Unknown]
  - Focal nodular hyperplasia [Unknown]
  - Hepatic adenoma [Unknown]
  - Bundle branch block right [Unknown]
  - Schizophrenia [Unknown]
  - Hallucination, auditory [Recovering/Resolving]
  - Mental impairment [Unknown]
  - Hallucination, visual [Recovering/Resolving]
  - Renal impairment [Unknown]
  - Neglect of personal appearance [Recovering/Resolving]
  - Affective disorder [Unknown]
  - Cognitive disorder [Recovering/Resolving]
  - Extrapyramidal disorder [Unknown]
  - Gastrooesophageal reflux disease [Unknown]
  - Stress [Unknown]
  - Hepatomegaly [Unknown]
  - Impaired fasting glucose [Unknown]
  - Hepatic enzyme increased [Unknown]
  - Dyslipidaemia [Unknown]
  - Tachycardia [Unknown]
